FAERS Safety Report 8543627-8 (Version None)
Quarter: 2012Q3

REPORT INFORMATION
  Report Type: 
  Country: None (occurrence: None)
  Receive Date: 20120727
  Receipt Date: 20120719
  Transmission Date: 20120928
  Serious: Yes (Hospitalization, Other)
  Sender: FDA-Public Use
  Company Number: CA-JNJFOC-20120107740

PATIENT
  Sex: Male
  Weight: 76 kg

DRUGS (7)
  1. CEPHALEXIN [Concomitant]
     Route: 065
     Dates: start: 20111214, end: 20111224
  2. LORAZEPAM [Concomitant]
     Route: 065
  3. DOXYCYCLINE HCL [Concomitant]
     Indication: CYST
     Route: 065
     Dates: start: 20120606
  4. REMICADE [Suspect]
     Indication: CROHN'S DISEASE
     Dosage: ^MAINTAINED AT 13^
     Route: 042
  5. PREDNISONE [Concomitant]
     Indication: RASH
     Route: 065
     Dates: start: 20120606
  6. ALL OTHER THERAPEUTICS [Concomitant]
     Route: 065
  7. MESALAMINE [Concomitant]
     Route: 065

REACTIONS (3)
  - ACUTE FEBRILE NEUTROPHILIC DERMATOSIS [None]
  - PHOTOSENSITIVITY REACTION [None]
  - CONVULSION [None]
